FAERS Safety Report 14854385 (Version 2)
Quarter: 2018Q3

REPORT INFORMATION
  Report Type: Spontaneous
  Country: FR (occurrence: FR)
  Receive Date: 20180507
  Receipt Date: 20180824
  Transmission Date: 20181010
  Serious: Yes (Hospitalization, Other)
  Sender: FDA-Public Use
  Company Number: FR-SA-2018SA127150

PATIENT
  Age: 88 Year
  Sex: Male
  Weight: 94 kg

DRUGS (16)
  1. LANTUS [Suspect]
     Active Substance: INSULIN GLARGINE
     Indication: DIABETES MELLITUS
     Dosage: 80 IU,QD
     Route: 058
     Dates: end: 20180306
  2. ESOMEPRAZOLE [Suspect]
     Active Substance: ESOMEPRAZOLE
     Indication: PRODUCT USED FOR UNKNOWN INDICATION
     Dosage: 40 MG,QD
     Route: 048
     Dates: end: 20180306
  3. RIVASTIGMINE. [Suspect]
     Active Substance: RIVASTIGMINE
     Indication: CORONARY ARTERY DISEASE
     Dosage: 3 MG,QD
     Route: 048
  4. RIVASTIGMINE. [Suspect]
     Active Substance: RIVASTIGMINE
     Indication: DEMENTIA
     Dosage: 40 UNK
     Route: 048
  5. DESLORATADINE. [Suspect]
     Active Substance: DESLORATADINE
     Indication: HYPERSENSITIVITY
     Dosage: UNK UNK,UNK
     Route: 048
     Dates: end: 20180306
  6. APROVEL [Suspect]
     Active Substance: IRBESARTAN
     Dosage: 1 DF,QD
     Route: 048
     Dates: end: 20180306
  7. RIVASTIGMINE. [Suspect]
     Active Substance: RIVASTIGMINE
     Indication: DIABETES MELLITUS
     Dosage: 1000 UNK
     Route: 048
  8. NOVORAPID [Suspect]
     Active Substance: INSULIN ASPART
     Indication: DIABETES MELLITUS
     Dosage: 24 IU,QD
     Route: 058
  9. METFORMIN HYDROCHLORIDE. [Concomitant]
     Active Substance: METFORMIN HYDROCHLORIDE
     Indication: DIABETES MELLITUS
     Dosage: 1000 MG,QD
     Route: 048
  10. DIFFU K [Concomitant]
     Active Substance: POTASSIUM CHLORIDE
     Dosage: UNK UNK,UNK
     Route: 065
  11. PREGABALIN. [Suspect]
     Active Substance: PREGABALIN
     Dosage: 125 MG,QD
     Route: 048
  12. PLAVIX [Suspect]
     Active Substance: CLOPIDOGREL BISULFATE
     Indication: CORONARY ARTERIAL STENT INSERTION
     Dosage: 1 DF,QD
     Route: 048
     Dates: end: 20180306
  13. RIVASTIGMINE. [Suspect]
     Active Substance: RIVASTIGMINE
     Dosage: 5 UNK
     Route: 048
  14. PREGABALIN. [Suspect]
     Active Substance: PREGABALIN
     Indication: PAIN
     Dosage: UNK UNK,QD
     Route: 048
  15. NEBIVOLOL. [Concomitant]
     Active Substance: NEBIVOLOL
     Indication: CORONARY ARTERY DISEASE
     Dosage: 5 MG,QD
     Route: 048
  16. ALLOPURINOL. [Concomitant]
     Active Substance: ALLOPURINOL
     Dosage: UNK UNK,UNK

REACTIONS (3)
  - Malaise [Recovered/Resolved]
  - Rhabdomyolysis [Recovered/Resolved]
  - Fall [Recovered/Resolved]

NARRATIVE: CASE EVENT DATE: 20180306
